FAERS Safety Report 14246707 (Version 2)
Quarter: 2018Q2

REPORT INFORMATION
  Report Type: Spontaneous
  Country: US (occurrence: US)
  Receive Date: 20171204
  Receipt Date: 20180405
  Transmission Date: 20180711
  Serious: Yes (Hospitalization, Other)
  Sender: FDA-Public Use
  Company Number: US-PFIZER INC-2017514534

PATIENT
  Age: 93 Year
  Sex: Male

DRUGS (1)
  1. SUTENT [Suspect]
     Active Substance: SUNITINIB MALATE
     Indication: RENAL CANCER STAGE IV
     Dosage: 50 MG, CYCLIC (DAILY FOR 28 DAYS ON AND 14 DAYS OFF)
     Dates: start: 20171027

REACTIONS (19)
  - Glossodynia [Recovered/Resolved]
  - Swollen tongue [Recovered/Resolved]
  - Platelet count decreased [Recovered/Resolved]
  - Jaundice [Recovered/Resolved]
  - Oral pain [Recovered/Resolved]
  - Oropharyngeal pain [Recovered/Resolved]
  - Confusional state [Unknown]
  - Muscular weakness [Unknown]
  - Asthenia [Recovered/Resolved]
  - Feeding disorder [Unknown]
  - Stomatitis [Recovered/Resolved]
  - Sleep disorder [Unknown]
  - Gait disturbance [Unknown]
  - Transient ischaemic attack [Unknown]
  - Dysphagia [Unknown]
  - Dyspnoea [Unknown]
  - Urinary retention [Unknown]
  - Constipation [Recovered/Resolved]
  - Weight decreased [Recovering/Resolving]
